FAERS Safety Report 5047139-8 (Version None)
Quarter: 2006Q3

REPORT INFORMATION
  Report Type: 
  Country: None (occurrence: None)
  Receive Date: 20060703
  Receipt Date: 20060622
  Transmission Date: 20061208
  Serious: Yes (Other)
  Sender: FDA-Public Use
  Company Number: 2006057938

PATIENT
  Age: 39 Year
  Sex: Female
  Weight: 56.7 kg

DRUGS (1)
  1. SUTENT [Suspect]
     Indication: RENAL CELL CARCINOMA STAGE UNSPECIFIED
     Dosage: 50 MG (50 MG, DAILY  INTERVAL CYCLIC), ORAL
     Route: 048
     Dates: start: 20050712

REACTIONS (7)
  - BLOOD CREATINE PHOSPHOKINASE INCREASED [None]
  - DISEASE PROGRESSION [None]
  - DRUG TOXICITY [None]
  - FATIGUE [None]
  - HYPOTHYROIDISM [None]
  - PALMAR-PLANTAR ERYTHRODYSAESTHESIA SYNDROME [None]
  - RENAL IMPAIRMENT [None]
